FAERS Safety Report 7700639-1 (Version None)
Quarter: 2011Q3

REPORT INFORMATION
  Report Type: 
  Country: None (occurrence: None)
  Receive Date: 20110822
  Receipt Date: 20110822
  Transmission Date: 20111222
  Serious: Yes (Hospitalization, Other)
  Sender: FDA-Public Use
  Company Number: None

PATIENT
  Sex: Female
  Weight: 79.832 kg

DRUGS (1)
  1. KARIVA [Suspect]
     Indication: ANAEMIA
     Dosage: 1 PILL
     Route: 048
     Dates: start: 20100501, end: 20101207

REACTIONS (8)
  - DIZZINESS [None]
  - DISTURBANCE IN ATTENTION [None]
  - HEADACHE [None]
  - ASTHENIA [None]
  - MENORRHAGIA [None]
  - DYSPNOEA [None]
  - ANAEMIA [None]
  - BLOOD TEST ABNORMAL [None]
